FAERS Safety Report 16723265 (Version 1)
Quarter: 2019Q3

REPORT INFORMATION
  Report Type: Spontaneous
  Country: None (occurrence: None)
  Receive Date: 20190821
  Receipt Date: 20190821
  Transmission Date: 20191005
  Serious: Yes (Other)
  Sender: FDA-Public Use
  Company Number: MICRO LABS LIMITED-ML2019-01917

PATIENT
  Age: 45 Year
  Sex: Male

DRUGS (5)
  1. ISONIAZID. [Suspect]
     Active Substance: ISONIAZID
     Indication: LATENT TUBERCULOSIS
  2. RIFAMPICIN [Suspect]
     Active Substance: RIFAMPIN
     Indication: LATENT TUBERCULOSIS
  3. AMIKACIN. [Suspect]
     Active Substance: AMIKACIN
     Indication: LATENT TUBERCULOSIS
  4. LEVOFLOXACIN. [Suspect]
     Active Substance: LEVOFLOXACIN
     Indication: LATENT TUBERCULOSIS
  5. CYCLOSERINE. [Suspect]
     Active Substance: CYCLOSERINE
     Indication: LATENT TUBERCULOSIS

REACTIONS (1)
  - Hepatotoxicity [Unknown]
